FAERS Safety Report 9701265 (Version 2)
Quarter: 2013Q4

REPORT INFORMATION
  Report Type: Spontaneous
  Country: US (occurrence: US)
  Receive Date: 20131121
  Receipt Date: 20131121
  Transmission Date: 20140711
  Serious: Yes (Hospitalization)
  Sender: FDA-Public Use
  Company Number: US-GILEAD-2008-0016027

PATIENT
  Age: 78 Year
  Sex: Female
  Weight: 59.87 kg

DRUGS (18)
  1. LETAIRIS [Suspect]
     Indication: PULMONARY ARTERIAL HYPERTENSION
     Route: 048
     Dates: start: 200710, end: 200803
  2. PREDNISONE [Concomitant]
  3. POTASSIUM [Concomitant]
  4. VENTAVIS [Concomitant]
  5. ALBUTEROL [Concomitant]
  6. ZOCOR [Concomitant]
  7. COUMADIN [Concomitant]
  8. VIAGRA [Concomitant]
  9. SINGULAIR [Concomitant]
  10. MG LACTATE [Concomitant]
  11. SYNTHROID [Concomitant]
  12. LEXAPRO [Concomitant]
  13. COREG [Concomitant]
  14. XANAX [Concomitant]
  15. LASIX [Concomitant]
  16. NEXIUM [Concomitant]
  17. METOLAZONE [Concomitant]
  18. NORVASC [Concomitant]

REACTIONS (2)
  - Fluid retention [Recovered/Resolved]
  - Oedema peripheral [Recovered/Resolved]
